FAERS Safety Report 6890974-1 (Version None)
Quarter: 2010Q3

REPORT INFORMATION
  Report Type: 
  Country: None (occurrence: None)
  Receive Date: 20100731
  Receipt Date: 20090429
  Transmission Date: 20110219
  Serious: No
  Sender: FDA-Public Use
  Company Number: US-PFIZER INC-2009207061

PATIENT
  Sex: Male
  Weight: 61.224 kg

DRUGS (3)
  1. VIBRAMYCIN [Suspect]
     Indication: ACNE
     Dosage: 2 TEASPOONS TWICE DAILY, EVERYDAY
     Dates: start: 20090421, end: 20090429
  2. VITAMINS [Concomitant]
     Dosage: UNK
  3. OMEGA-3 TRIGLYCERIDES [Concomitant]
     Dosage: UNK

REACTIONS (2)
  - GLOSSODYNIA [None]
  - THROAT IRRITATION [None]
